FAERS Safety Report 8419352-0 (Version None)
Quarter: 2012Q2

REPORT INFORMATION
  Report Type: 
  Country: None (occurrence: None)
  Receive Date: 20120607
  Receipt Date: 20120529
  Transmission Date: 20120825
  Serious: No
  Sender: FDA-Public Use
  Company Number: NL-GENZYME-POMP-1002055

PATIENT
  Sex: Female
  Weight: 77 kg

DRUGS (13)
  1. LACTITOL [Concomitant]
     Indication: CONSTIPATION
     Dosage: 10 MG, QD
     Dates: start: 20090202
  2. SERTRALINE HYDROCHLORIDE [Concomitant]
     Indication: DEPRESSION
     Dosage: 25 MG, QD
     Dates: start: 20081231
  3. CLEMASTINE [Concomitant]
     Dosage: 2 MG, ONCE
     Route: 042
     Dates: start: 20100506, end: 20100506
  4. CALCIUM CARBONATE [Concomitant]
     Indication: OSTEOPOROSIS
     Dosage: 500 MG, QD
     Dates: start: 20090202
  5. FLUTICASONE W [Concomitant]
     Indication: CHRONIC OBSTRUCTIVE PULMONARY DISEASE
     Dosage: 25/125 MG, TID
     Dates: start: 20081231
  6. CLEMASTINE [Concomitant]
     Dosage: 1 MG, UNK
     Route: 042
     Dates: start: 20100506, end: 20100506
  7. MYOZYME [Suspect]
     Indication: GLYCOGEN STORAGE DISEASE TYPE II
     Dosage: 20 MG, Q2W
     Route: 042
     Dates: start: 20061221
  8. ACETYLCYSTEINE [Concomitant]
     Indication: RESPIRATORY FAILURE
     Dosage: 600 MG, QD
     Dates: start: 20081231
  9. BUMETANIDE [Concomitant]
     Indication: DIURETIC THERAPY
     Dosage: 1 MG, BID
     Dates: start: 20081228
  10. CLEMASTINE [Concomitant]
     Indication: PREMEDICATION
     Dosage: 2 MG, ONCE
     Route: 042
     Dates: start: 20100506, end: 20100506
  11. HYDROCORTISONE [Concomitant]
     Indication: PREMEDICATION
     Dosage: 200 MG, ONCE
     Route: 042
     Dates: start: 20100506, end: 20100506
  12. OMEPRAZOLE [Concomitant]
     Indication: GASTRIC DISORDER
     Dosage: 20 MG, QD
     Dates: start: 20081231
  13. OXAZEPAM [Concomitant]
     Indication: ANXIETY
     Dosage: 20 MG, BID
     Dates: start: 20081231

REACTIONS (2)
  - CHEST PAIN [None]
  - RASH [None]
